FAERS Safety Report 23776130 (Version 1)
Quarter: 2024Q2

REPORT INFORMATION
  Report Type: Report from Study
  Country: US (occurrence: US)
  Receive Date: 20240424
  Receipt Date: 20240424
  Transmission Date: 20240716
  Serious: Yes (Other)
  Sender: FDA-Public Use
  Company Number: US-JAZZ PHARMACEUTICALS-2022-US-014872

PATIENT
  Sex: Female

DRUGS (19)
  1. XYWAV [Suspect]
     Active Substance: CALCIUM OXYBATE\MAGNESIUM OXYBATE\POTASSIUM OXYBATE\SODIUM OXYBATE
     Indication: Narcolepsy
     Dosage: 4.5GM/4GM
     Route: 048
     Dates: start: 20211115
  2. XYWAV [Suspect]
     Active Substance: CALCIUM OXYBATE\MAGNESIUM OXYBATE\POTASSIUM OXYBATE\SODIUM OXYBATE
     Indication: Cataplexy
     Dosage: 4.25 GRAM
  3. XYWAV [Suspect]
     Active Substance: CALCIUM OXYBATE\MAGNESIUM OXYBATE\POTASSIUM OXYBATE\SODIUM OXYBATE
     Indication: Somnolence
     Dosage: 5.75 GRAM
  4. XYWAV [Suspect]
     Active Substance: CALCIUM OXYBATE\MAGNESIUM OXYBATE\POTASSIUM OXYBATE\SODIUM OXYBATE
     Dosage: UNK
  5. LUMRYZ [Suspect]
     Active Substance: SODIUM OXYBATE
     Indication: Product used for unknown indication
     Dosage: UNK
     Dates: start: 20231009
  6. EVEKEO [Concomitant]
     Active Substance: AMPHETAMINE SULFATE
     Dosage: UNK
     Dates: start: 20191104
  7. WAKIX [Concomitant]
     Active Substance: PITOLISANT HYDROCHLORIDE
     Dosage: UNK
     Dates: start: 20191104
  8. PROZAC [Concomitant]
     Active Substance: FLUOXETINE HYDROCHLORIDE
     Dosage: UNK
     Dates: start: 20230329
  9. ZOLOFT [Concomitant]
     Active Substance: SERTRALINE HYDROCHLORIDE
     Dosage: UNK
     Dates: start: 20230905
  10. PANTOPRAZOLE [Concomitant]
     Active Substance: PANTOPRAZOLE
     Dosage: UNK
     Dates: start: 20230901
  11. FLONASE ALLERGY RELIEF [Concomitant]
     Active Substance: FLUTICASONE PROPIONATE
     Dosage: UNK
     Dates: start: 20221017
  12. MIRENA [Concomitant]
     Active Substance: LEVONORGESTREL
     Dosage: UNK
     Dates: start: 20201017
  13. AKLIEF [Concomitant]
     Active Substance: TRIFAROTENE
     Dosage: UNK
     Dates: start: 20231010
  14. HYDROQUINONE [Concomitant]
     Active Substance: HYDROQUINONE
     Dosage: UNK
     Dates: start: 20231007
  15. CLINDAMYCIN PHOSPHATE [Concomitant]
     Active Substance: CLINDAMYCIN PHOSPHATE
     Dosage: UNK
     Dates: start: 20231010
  16. LEXAPRO [Concomitant]
     Active Substance: ESCITALOPRAM OXALATE
     Dosage: UNK
     Dates: start: 20230601
  17. TEMAZEPAM [Concomitant]
     Active Substance: TEMAZEPAM
  18. FAMOTIDINE [Concomitant]
     Active Substance: FAMOTIDINE
     Indication: Product used for unknown indication
     Dosage: UNK
     Dates: start: 20230901
  19. WINLEVI [Concomitant]
     Active Substance: CLASCOTERONE
     Indication: Product used for unknown indication
     Dosage: UNK
     Dates: start: 20240417

REACTIONS (12)
  - Haemorrhage [Unknown]
  - Loss of personal independence in daily activities [Unknown]
  - Gastritis [Unknown]
  - Iron deficiency [Recovered/Resolved]
  - Vitamin B complex deficiency [Recovered/Resolved]
  - Acne [Unknown]
  - Somnambulism [Not Recovered/Not Resolved]
  - Urinary incontinence [Unknown]
  - Fall [Unknown]
  - Product administration interrupted [Unknown]
  - Product container issue [Unknown]
  - Extra dose administered [Unknown]

NARRATIVE: CASE EVENT DATE: 20230101
